FAERS Safety Report 9123637 (Version 1)
Quarter: 2013Q1

REPORT INFORMATION
  Report Type: Spontaneous
  Country: MX (occurrence: MX)
  Receive Date: 20130227
  Receipt Date: 20130227
  Transmission Date: 20140127
  Serious: Yes (Other)
  Sender: FDA-Public Use
  Company Number: MX-ROCHE-1195820

PATIENT
  Sex: Female
  Weight: 61 kg

DRUGS (1)
  1. BONVIVA [Suspect]
     Indication: OSTEOPENIA
     Route: 048
     Dates: start: 2007, end: 2010

REACTIONS (1)
  - Breast cancer [Not Recovered/Not Resolved]
